FAERS Safety Report 20450025 (Version 2)
Quarter: 2023Q1

REPORT INFORMATION
  Report Type: Spontaneous
  Country: US (occurrence: US)
  Receive Date: 20220209
  Receipt Date: 20230315
  Transmission Date: 20230417
  Serious: Yes (Other)
  Sender: FDA-Public Use
  Company Number: US-AMGEN-USASP2022019801

PATIENT
  Age: 42 Year
  Sex: Male

DRUGS (5)
  1. REPATHA [Suspect]
     Active Substance: EVOLOCUMAB
     Indication: Blood cholesterol abnormal
     Dosage: 140 MILLIGRAM, Q2WK
     Route: 065
  2. REPATHA [Suspect]
     Active Substance: EVOLOCUMAB
     Indication: Hypercholesterolaemia
  3. WARFARIN [Concomitant]
     Active Substance: WARFARIN
     Indication: Cardiac valve disease
     Dosage: 5 MILLIGRAM, 2 DAYS HE TAKES 7.5 MG
     Dates: start: 201908
  4. ASPIRIN [Concomitant]
     Active Substance: ASPIRIN
     Indication: Cardiac valve disease
     Dosage: 81 MILLIGRAM
     Dates: start: 201908
  5. VITAMINS [Concomitant]
     Active Substance: VITAMINS
     Indication: General physical condition abnormal

REACTIONS (3)
  - Cardiac flutter [Not Recovered/Not Resolved]
  - Palpitations [Not Recovered/Not Resolved]
  - Dizziness [Unknown]

NARRATIVE: CASE EVENT DATE: 20230301
